FAERS Safety Report 15858317 (Version 1)
Quarter: 2019Q1

REPORT INFORMATION
  Report Type: Report from Study
  Country: US (occurrence: US)
  Receive Date: 20190123
  Receipt Date: 20190123
  Transmission Date: 20190417
  Serious: Yes (Hospitalization)
  Sender: FDA-Public Use
  Company Number: US-BAYER-2019-015899

PATIENT
  Age: 83 Year
  Sex: Female
  Weight: 86.17 kg

DRUGS (2)
  1. AMLODIPINE [Concomitant]
     Active Substance: AMLODIPINE BESYLATE
     Dosage: UNK
  2. ADEMPAS [Suspect]
     Active Substance: RIOCIGUAT
     Indication: PULMONARY ARTERIAL HYPERTENSION
     Dosage: 0.5 MG, TID
     Route: 048
     Dates: start: 20181019, end: 201811

REACTIONS (3)
  - Hypoglycaemia [None]
  - Feeling abnormal [None]
  - Blood glucose decreased [None]

NARRATIVE: CASE EVENT DATE: 20181019
